FAERS Safety Report 4483429-5 (Version None)
Quarter: 2004Q4

REPORT INFORMATION
  Report Type: 
  Country: None (occurrence: None)
  Receive Date: 20041020
  Receipt Date: 20041001
  Transmission Date: 20050328
  Serious: Yes (Hospitalization, Other)
  Sender: FDA-Public Use
  Company Number: USA041079998

PATIENT
  Age: 75 Year
  Sex: Male
  Weight: 78 kg

DRUGS (2)
  1. HUMALOG [Suspect]
     Dates: start: 20040823
  2. LANTUS [Concomitant]

REACTIONS (7)
  - AORTIC VALVE REPLACEMENT [None]
  - CLOSTRIDIAL INFECTION [None]
  - DYSPNOEA [None]
  - LOOSE STOOLS [None]
  - PERICARDIAL EFFUSION [None]
  - PLEURAL EFFUSION [None]
  - VASCULAR OPERATION [None]
